FAERS Safety Report 5859735-6 (Version None)
Quarter: 2008Q3

REPORT INFORMATION
  Report Type: 
  Country: None (occurrence: None)
  Receive Date: 20080827
  Receipt Date: 20080814
  Transmission Date: 20090109
  Serious: Yes (Death, Life-Threatening, Hospitalization, Other)
  Sender: FDA-Public Use
  Company Number: PHHO2007US09840

PATIENT
  Sex: Male
  Weight: 78.9 kg

DRUGS (17)
  1. TASIGNA [Suspect]
     Indication: CHRONIC MYELOID LEUKAEMIA
     Dosage: 400 MG, BID
     Route: 048
     Dates: start: 20070130
  2. METOPROLOL TARTRATE [Concomitant]
     Indication: PROPHYLAXIS
     Dosage: 12.5 MG, BID
     Dates: start: 20070613, end: 20070716
  3. LASIX [Concomitant]
     Indication: FLUID OVERLOAD
     Dosage: 40 MG, UNK
     Dates: start: 20070613, end: 20070616
  4. HYDREA [Concomitant]
     Indication: CHRONIC MYELOID LEUKAEMIA
     Dosage: 2000 UNK, BID
     Route: 048
     Dates: start: 20070611, end: 20070617
  5. LEVOTHYROXINE [Concomitant]
     Indication: HYPOTHYROIDISM
     Dosage: 15 UG, UNK
     Route: 048
     Dates: start: 20070612, end: 20070713
  6. EFFEXOR [Concomitant]
     Indication: DEPRESSION
     Dosage: 225 MG, UNK
     Route: 048
     Dates: start: 20070612, end: 20070713
  7. ALLOPURINOL [Concomitant]
     Indication: TUMOUR LYSIS SYNDROME
     Dosage: 300 MG, QD
     Dates: start: 20070130, end: 20070712
  8. DIFLUCAN [Concomitant]
     Indication: CANDIDIASIS
     Dosage: 200 MG, UNK
     Route: 042
     Dates: start: 20070612, end: 20070711
  9. VITAMIN B-12 [Concomitant]
     Indication: ANAEMIA
     Dosage: 100 UG, QD
     Dates: start: 20070612, end: 20070612
  10. LORAZEPAM [Concomitant]
     Indication: ANXIETY
     Dosage: 2 MG, UNK
     Dates: start: 20070612, end: 20070612
  11. MAALOX [Concomitant]
     Indication: DYSPEPSIA
     Dosage: 30 ML, UNK
     Dates: start: 20070612, end: 20070612
  12. MULTI-VITAMINS [Concomitant]
     Dosage: ONE TABLET
     Dates: start: 20070613, end: 20070712
  13. OXYBUTYNIN [Concomitant]
     Dosage: 2.5 MG, TID
     Route: 048
     Dates: start: 20070612, end: 20070612
  14. OXYCODONE HCL [Concomitant]
     Indication: PAIN
     Dosage: 5 MG, UNK
     Route: 048
     Dates: start: 20070612, end: 20070712
  15. POTASSIUM CHLORIDE [Concomitant]
     Indication: HYPOKALAEMIA
     Dosage: 40 UG, UNK
     Route: 048
     Dates: start: 20070612, end: 20070612
  16. VITAMIN B1 TAB [Concomitant]
     Dosage: 100 MG, QD
     Route: 048
     Dates: start: 20070612, end: 20070719
  17. NICOTINE [Concomitant]
     Dosage: 7 MG, QD
     Route: 062
     Dates: start: 20070612, end: 20070720

REACTIONS (14)
  - ACUTE RESPIRATORY FAILURE [None]
  - ATRIAL TACHYCARDIA [None]
  - BACK PAIN [None]
  - CARDIAC ENZYMES INCREASED [None]
  - CHRONIC MYELOID LEUKAEMIA [None]
  - DEHYDRATION [None]
  - ELECTROCARDIOGRAM T WAVE ABNORMAL [None]
  - ENDOTRACHEAL INTUBATION [None]
  - MEMORY IMPAIRMENT [None]
  - MENTAL STATUS CHANGES [None]
  - MYOCARDIAL INFARCTION [None]
  - PNEUMONIA [None]
  - SEPTIC SHOCK [None]
  - URINARY TRACT INFECTION [None]
